FAERS Safety Report 19507280 (Version 3)
Quarter: 2021Q3

REPORT INFORMATION
  Report Type: Spontaneous
  Country: US (occurrence: US)
  Receive Date: 20210708
  Receipt Date: 20210928
  Transmission Date: 20211014
  Serious: Yes (Other)
  Sender: FDA-Public Use
  Company Number: US-BIOVITRUM-2021US3393

PATIENT
  Age: 8 Year
  Sex: Female

DRUGS (9)
  1. KINERET [Suspect]
     Active Substance: ANAKINRA
     Indication: PYREXIA
     Route: 058
  2. KINERET [Suspect]
     Active Substance: ANAKINRA
     Route: 058
     Dates: start: 202103
  3. CETIRIZINE [Concomitant]
     Active Substance: CETIRIZINE HYDROCHLORIDE
  4. FLUTICASONE. [Concomitant]
     Active Substance: FLUTICASONE
  5. SULFASALAZINE. [Concomitant]
     Active Substance: SULFASALAZINE
  6. KINERET [Suspect]
     Active Substance: ANAKINRA
     Indication: DERMATOMYOSITIS
     Route: 058
     Dates: start: 20210321
  7. ZOFRAN [Concomitant]
     Active Substance: ONDANSETRON HYDROCHLORIDE
     Dosage: AS NEEDED
  8. PROAIR HFA [Concomitant]
     Active Substance: ALBUTEROL SULFATE
  9. MONTELUKAST [Concomitant]
     Active Substance: MONTELUKAST SODIUM

REACTIONS (14)
  - Rash pruritic [Unknown]
  - Irritability [Not Recovered/Not Resolved]
  - Visual impairment [Unknown]
  - Injection site pain [Not Recovered/Not Resolved]
  - Staphylococcal infection [Unknown]
  - Injection site bruising [Unknown]
  - Miliaria [Unknown]
  - Syringe issue [Unknown]
  - Product dose omission issue [Unknown]
  - Headache [Unknown]
  - Off label use [Unknown]
  - Cerebrospinal fluid leakage [Unknown]
  - Injection site swelling [Unknown]
  - Depression [Unknown]

NARRATIVE: CASE EVENT DATE: 202103
